FAERS Safety Report 25896063 (Version 1)
Quarter: 2025Q4

REPORT INFORMATION
  Report Type: Spontaneous
  Country: EU (occurrence: EU)
  Receive Date: 20251008
  Receipt Date: 20251008
  Transmission Date: 20260117
  Serious: Yes (Hospitalization, Other)
  Sender: BAUSCH AND LOMB
  Company Number: EU-AMGEN-POLSP2025190828

PATIENT
  Age: 18 Year
  Sex: Male

DRUGS (3)
  1. DEXAMETHASONE [Suspect]
     Active Substance: DEXAMETHASONE
     Indication: Platelet count decreased
     Dosage: 40 MILLIGRAM, QD (40 MG/D FOR 4 DAYS)
     Route: 042
  2. NPLATE [Suspect]
     Active Substance: ROMIPLOSTIM
     Indication: Product used for unknown indication
     Dosage: UNK
     Route: 065
  3. PREDNISONE [Suspect]
     Active Substance: PREDNISONE
     Indication: Product used for unknown indication
     Dosage: 1 MICROGRAM/KILOGRAM, QMO (1 MG/KG/MONTH)
     Route: 048

REACTIONS (3)
  - Immune thrombocytopenia [Unknown]
  - Thrombocytopenia [Unknown]
  - Steroid dependence [Unknown]
